FAERS Safety Report 21610342 (Version 1)
Quarter: 2022Q4

REPORT INFORMATION
  Report Type: Spontaneous
  Country: US (occurrence: None)
  Receive Date: 20221117
  Receipt Date: 20221117
  Transmission Date: 20230113
  Serious: Yes (Death)
  Sender: FDA-Public Use
  Company Number: None

PATIENT
  Age: 67 Year
  Sex: Female

DRUGS (1)
  1. PALBOCICLIB [Suspect]
     Active Substance: PALBOCICLIB
     Indication: Breast cancer metastatic
     Dates: start: 20210614, end: 20221018

REACTIONS (6)
  - Pneumonitis [None]
  - Acute respiratory failure [None]
  - Reaction to previous exposure to any vaccine [None]
  - COVID-19 immunisation [None]
  - Inflammation [None]
  - Pneumonia aspiration [None]

NARRATIVE: CASE EVENT DATE: 20221031
